FAERS Safety Report 6918248-0 (Version None)
Quarter: 2010Q3

REPORT INFORMATION
  Report Type: 
  Country: None (occurrence: None)
  Receive Date: 20100811
  Receipt Date: 20100517
  Transmission Date: 20110219
  Serious: Yes (Other)
  Sender: FDA-Public Use
  Company Number: US-ASTRAZENECA-2009SE17230

PATIENT
  Age: 14987 Day
  Sex: Female

DRUGS (6)
  1. SEROQUEL [Suspect]
     Route: 048
     Dates: start: 20080320
  2. HYDROCODONE BITARTRATE AND ACETAMINOPHEN [Concomitant]
     Dosage: 5-500 MG DISPENSED
     Dates: start: 20080423
  3. IBUPROFEN [Concomitant]
     Dates: start: 20080423
  4. DIAZEPAM [Concomitant]
     Dates: start: 20080319
  5. ALPRAZOLAM [Concomitant]
     Dates: start: 20080626
  6. TRAMADOL HYDROCHLORIDE [Concomitant]
     Dates: start: 20080626

REACTIONS (2)
  - IMPAIRED GASTRIC EMPTYING [None]
  - TYPE 2 DIABETES MELLITUS [None]
